FAERS Safety Report 8810389 (Version 1)
Quarter: 2012Q4

REPORT INFORMATION
  Report Type: 
  Country: US (occurrence: US)
  Receive Date: 20120926
  Receipt Date: 20120926
  Transmission Date: 20130627
  Serious: No
  Sender: FDA-Public Use
  Company Number: US-009507513-1209USA009318

PATIENT
  Age: 43 Year
  Sex: Female
  Weight: 70.3 kg

DRUGS (1)
  1. NUVARING [Suspect]
     Indication: CONTRACEPTION
     Dosage: 3 weeks in, 1 weeks out
     Route: 067
     Dates: end: 20120810

REACTIONS (5)
  - Weight increased [Not Recovered/Not Resolved]
  - Abdominal distension [Not Recovered/Not Resolved]
  - Menstruation irregular [Not Recovered/Not Resolved]
  - Metrorrhagia [Not Recovered/Not Resolved]
  - Menorrhagia [Not Recovered/Not Resolved]
